FAERS Safety Report 9835663 (Version 1)
Quarter: 2014Q1

REPORT INFORMATION
  Report Type: Spontaneous
  Country: US (occurrence: US)
  Receive Date: 20140122
  Receipt Date: 20140122
  Transmission Date: 20141002
  Serious: Yes (Other)
  Sender: FDA-Public Use
  Company Number: US-WATSON-2014-00309

PATIENT
  Sex: Female

DRUGS (1)
  1. ESTRADIOL (WATSON LABORATORIES) [Suspect]
     Indication: PRODUCT USED FOR UNKNOWN INDICATION
     Dosage: UNK, UNKNOWN
     Route: 065

REACTIONS (3)
  - Uterine haemorrhage [Unknown]
  - Uterine disorder [Unknown]
  - Therapeutic response unexpected with drug substitution [Unknown]
